FAERS Safety Report 10248603 (Version 1)
Quarter: 2014Q2

REPORT INFORMATION
  Report Type: Spontaneous
  Country: FR (occurrence: FR)
  Receive Date: 20140620
  Receipt Date: 20140620
  Transmission Date: 20141212
  Serious: Yes (Other)
  Sender: FDA-Public Use
  Company Number: PHHY2014FR075307

PATIENT
  Age: 60 Year
  Sex: 0

DRUGS (21)
  1. CICLOSPORIN [Suspect]
     Indication: IMMUNOSUPPRESSION
     Dosage: 25 MG, BID
     Route: 048
  2. CICLOSPORIN [Interacting]
     Dosage: 100 MG, PER DAY
  3. CICLOSPORIN [Interacting]
     Dosage: 50 MG, PER DAY
     Route: 042
  4. CICLOSPORIN [Interacting]
     Dosage: 200 MG, DAILY
     Route: 042
  5. CICLOSPORIN [Interacting]
     Dosage: 50 MG, PER DAY
     Route: 042
  6. ARGATROBAN [Interacting]
     Route: 042
  7. EVEROLIMUS [Concomitant]
     Dosage: 0.75 MG, DAILY
  8. PREDNISOLONE [Concomitant]
     Dosage: 5 MG, QD
  9. MYCOPHENOLATE MOFETIL [Concomitant]
     Dosage: 2 G, UNK
     Route: 042
  10. MYCOPHENOLATE MOFETIL [Concomitant]
     Dosage: 1000 MG, BID
     Route: 042
  11. METHYLPREDNISOLONE [Concomitant]
     Indication: IMMUNOSUPPRESSION
     Dosage: 40 MG, DAILY
     Route: 042
  12. ACETAMINOPHEN [Concomitant]
     Dosage: 1000 MG, QID
  13. ONDANSETRON [Concomitant]
     Dosage: 4 MG, EVERY 8HOURS
  14. ESOMEPRAZOLE [Concomitant]
     Dosage: 40 MG, DAILY
  15. ANTICOAGULANTS [Concomitant]
     Route: 042
  16. MIDAZOLAM [Concomitant]
  17. SUFENTANIL CITRATE [Concomitant]
  18. CEFTAZIDIME [Concomitant]
     Dosage: 2000 MG, DAILY
  19. LINEZOLID [Concomitant]
     Dosage: 600 MG, BID
  20. GANCICLOVIR [Concomitant]
     Dosage: 125 MG, BID
  21. HEPARIN [Concomitant]

REACTIONS (2)
  - Immunosuppressant drug level increased [Recovered/Resolved]
  - Drug interaction [Unknown]
